FAERS Safety Report 18538151 (Version 1)
Quarter: 2020Q4

REPORT INFORMATION
  Report Type: Spontaneous
  Country: US (occurrence: US)
  Receive Date: 20201124
  Receipt Date: 20201124
  Transmission Date: 20210114
  Serious: Yes (Hospitalization, Other)
  Sender: FDA-Public Use
  Company Number: US-ASTELLAS-2020US040799

PATIENT
  Age: 68 Year
  Sex: Female

DRUGS (4)
  1. GILTERITINIB [Suspect]
     Active Substance: GILTERITINIB
     Route: 048
  2. ACYCLOVIR [ACICLOVIR] [Concomitant]
     Active Substance: ACYCLOVIR
     Indication: PROPHYLAXIS
     Dosage: UNK UNK, UNKNOWN FREQ.
     Route: 065
  3. GILTERITINIB [Suspect]
     Active Substance: GILTERITINIB
     Indication: ACUTE MYELOID LEUKAEMIA
     Route: 048
  4. MICAFUNGIN. [Suspect]
     Active Substance: MICAFUNGIN SODIUM
     Indication: PROPHYLAXIS
     Dosage: UNK UNK, UNKNOWN FREQ.
     Route: 065

REACTIONS (10)
  - Staphylococcal bacteraemia [Unknown]
  - Toxicity to various agents [Unknown]
  - Pancytopenia [Recovered/Resolved]
  - Febrile neutropenia [Unknown]
  - Fatigue [Unknown]
  - Thrombocytopenia [Unknown]
  - Anaemia [Unknown]
  - Muscular weakness [Unknown]
  - Staphylococcal infection [Unknown]
  - Product use in unapproved indication [Unknown]
